FAERS Safety Report 4277974-5 (Version None)
Quarter: 2004Q1

REPORT INFORMATION
  Report Type: 
  Country: None (occurrence: None)
  Receive Date: 20040120
  Receipt Date: 20040106
  Transmission Date: 20041129
  Serious: Yes (Life-Threatening, Hospitalization)
  Sender: FDA-Public Use
  Company Number: US-JNJFOC-20040101142

PATIENT
  Age: 27 Year
  Sex: Female
  Weight: 63.5036 kg

DRUGS (10)
  1. REMICADE (INFLIXIMAB, RECOMBINANT) LYOPHILIZED POWDER [Suspect]
     Indication: CROHN'S DISEASE
     Dosage: 5 + 28 MG/KG, INTRAVENOUS
     Route: 042
     Dates: start: 20021121
  2. REMICADE (INFLIXIMAB, RECOMBINANT) LYOPHILIZED POWDER [Suspect]
     Indication: CROHN'S DISEASE
     Dosage: 5 + 28 MG/KG, INTRAVENOUS
     Route: 042
     Dates: start: 20030110
  3. REMICADE (INFLIXIMAB, RECOMBINANT) LYOPHILIZED POWDER [Suspect]
     Indication: CROHN'S DISEASE
     Dosage: 5 + 28 MG/KG, INTRAVENOUS
     Route: 042
     Dates: start: 20030616
  4. REMICADE (INFLIXIMAB, RECOMBINANT) LYOPHILIZED POWDER [Suspect]
     Indication: CROHN'S DISEASE
     Dosage: 5 + 28 MG/KG, INTRAVENOUS
     Route: 042
     Dates: start: 20030711
  5. REMICADE (INFLIXIMAB, RECOMBINANT) LYOPHILIZED POWDER [Suspect]
     Indication: CROHN'S DISEASE
     Dosage: 5 + 28 MG/KG, INTRAVENOUS
     Route: 042
     Dates: start: 20030728
  6. REMICADE (INFLIXIMAB, RECOMBINANT) LYOPHILIZED POWDER [Suspect]
     Indication: CROHN'S DISEASE
     Dosage: 5 + 28 MG/KG, INTRAVENOUS
     Route: 042
     Dates: start: 20030915
  7. REMICADE (INFLIXIMAB, RECOMBINANT) LYOPHILIZED POWDER [Suspect]
     Indication: CROHN'S DISEASE
     Dosage: 5 + 28 MG/KG, INTRAVENOUS
     Route: 042
     Dates: start: 20031118
  8. AZATHIOPRINE [Concomitant]
  9. MESALAMINE (MESALAZINE) [Concomitant]
  10. ANTIDEPRESSANTS (ANTIDEPRESSANTS) [Concomitant]

REACTIONS (3)
  - DRUG INTERACTION [None]
  - INTENTIONAL OVERDOSE [None]
  - SUICIDE ATTEMPT [None]
